FAERS Safety Report 5128947-1 (Version None)
Quarter: 2006Q4

REPORT INFORMATION
  Report Type: 
  Country: None (occurrence: None)
  Receive Date: 20061017
  Receipt Date: 20060203
  Transmission Date: 20070319
  Serious: Yes (Death, Other)
  Sender: FDA-Public Use
  Company Number: PHHO2006JP01994

PATIENT
  Age: 52 Year
  Sex: Male

DRUGS (6)
  1. ZOMETA [Suspect]
     Indication: HYPERCALCAEMIA OF MALIGNANCY
     Dosage: 4 MG, UNK
     Route: 042
     Dates: start: 20050909
  2. OXYCONTIN [Concomitant]
     Dosage: 40 MG, UNK
     Route: 048
     Dates: start: 20050721, end: 20050925
  3. NOVAMIN [Concomitant]
     Dosage: 10 MG, UNK
     Route: 048
     Dates: start: 20050721, end: 20050917
  4. ZANTAC [Concomitant]
     Dosage: 300 MG, UNK
     Route: 048
     Dates: start: 20050713
  5. LOXOPROFEN [Concomitant]
     Dosage: 180 MG, UNK
     Route: 048
     Dates: start: 20050713
  6. LANDSEN [Concomitant]
     Dosage: 0.5 MG, UNK
     Route: 048
     Dates: start: 20050721, end: 20050912

REACTIONS (4)
  - ASPARTATE AMINOTRANSFERASE INCREASED [None]
  - BLOOD CREATININE INCREASED [None]
  - BLOOD SODIUM INCREASED [None]
  - MALIGNANT NEOPLASM PROGRESSION [None]
